FAERS Safety Report 7589681-1 (Version None)
Quarter: 2011Q3

REPORT INFORMATION
  Report Type: 
  Country: None (occurrence: None)
  Receive Date: 20110705
  Receipt Date: 20110624
  Transmission Date: 20111222
  Serious: Yes (Death)
  Sender: FDA-Public Use
  Company Number: US-BAXTER-2011BH019869

PATIENT
  Sex: Male

DRUGS (1)
  1. DIANEAL [Suspect]
     Indication: PERITONEAL DIALYSIS
     Route: 033
     Dates: start: 20100101, end: 20110611

REACTIONS (4)
  - CARDIAC DISORDER [None]
  - FAILURE TO THRIVE [None]
  - REFUSAL OF TREATMENT BY PATIENT [None]
  - PULMONARY HYPERTENSION [None]
